FAERS Safety Report 9070190 (Version 1)
Quarter: 2013Q1

REPORT INFORMATION
  Report Type: Spontaneous
  Country: RO (occurrence: RO)
  Receive Date: 20130129
  Receipt Date: 20130129
  Transmission Date: 20140127
  Serious: Yes (Life-Threatening)
  Sender: FDA-Public Use
  Company Number: RO-WATSON-2013-01081

PATIENT
  Age: 67 Year
  Sex: Male

DRUGS (3)
  1. ALBUTEROL SULFATE (WATSON LABORATORIES) [Suspect]
  2. FLUTICASONE PROPIONATE W/SALMETEROL [Concomitant]
     Indication: ASTHMA
     Dosage: 250/50MCG, BID
     Route: 065
  3. TIOTROPIUM BROMIDE [Concomitant]
     Indication: CHRONIC OBSTRUCTIVE PULMONARY DISEASE
     Dosage: UNK
     Route: 065

REACTIONS (2)
  - Status asthmaticus [Recovered/Resolved]
  - Bronchospasm paradoxical [Recovered/Resolved]
